FAERS Safety Report 4586374-X (Version None)
Quarter: 2005Q1

REPORT INFORMATION
  Report Type: 
  Country: None (occurrence: None)
  Receive Date: 20050125
  Receipt Date: 20040907
  Transmission Date: 20050727
  Serious: No
  Sender: FDA-Public Use
  Company Number: USA040977519

PATIENT
  Age: 82 Year
  Sex: Female
  Weight: 55 kg

DRUGS (7)
  1. FORTEO [Suspect]
     Indication: OSTEOPOROSIS
     Dates: start: 20040401
  2. ZOCOR [Concomitant]
  3. COZAAR [Concomitant]
  4. BEXTRA [Concomitant]
  5. NEXIUM [Concomitant]
  6. CITRACAL PLUS [Concomitant]
  7. PROPRANOLOL [Concomitant]

REACTIONS (2)
  - ASTHENIA [None]
  - POLLAKIURIA [None]
